FAERS Safety Report 6535395-6 (Version None)
Quarter: 2010Q1

REPORT INFORMATION
  Report Type: 
  Country: None (occurrence: None)
  Receive Date: 20100113
  Receipt Date: 20100105
  Transmission Date: 20100710
  Serious: Yes (Hospitalization, Other)
  Sender: FDA-Public Use
  Company Number: US-JNJFOC-20100101941

PATIENT
  Sex: Female
  Weight: 92.53 kg

DRUGS (8)
  1. DURAGESIC-100 [Suspect]
     Indication: BACK PAIN
     Route: 062
  2. DURAGESIC-100 [Suspect]
     Route: 062
  3. UNSPECIFIED FENTANYL TRNASDERMAL SYSTEM [Suspect]
     Indication: BACK PAIN
     Route: 062
  4. DURAGESIC-100 [Suspect]
     Route: 062
  5. DILAUDID [Concomitant]
     Indication: PAIN
     Route: 048
  6. IMITREX [Concomitant]
     Indication: POST LUMBAR PUNCTURE SYNDROME
     Route: 048
  7. LIDOCAINE [Concomitant]
     Indication: PAIN
     Route: 061
  8. ROBAXIN [Concomitant]
     Indication: MUSCLE SPASMS
     Route: 048

REACTIONS (9)
  - FEELING ABNORMAL [None]
  - INTERVERTEBRAL DISC DISORDER [None]
  - MEDICAL DEVICE COMPLICATION [None]
  - MUSCLE CONTRACTURE [None]
  - NAUSEA [None]
  - OVERDOSE [None]
  - PRURITUS [None]
  - THROAT TIGHTNESS [None]
  - VOMITING [None]
